FAERS Safety Report 6450651-8 (Version None)
Quarter: 2009Q4

REPORT INFORMATION
  Report Type: 
  Country: None (occurrence: None)
  Receive Date: 20091120
  Receipt Date: 20091120
  Transmission Date: 20100525
  Serious: Yes (Hospitalization)
  Sender: FDA-Public Use
  Company Number: None

PATIENT
  Age: 72 Year
  Sex: Male
  Weight: 94.34 kg

DRUGS (4)
  1. SIMVASTATIN [Suspect]
     Indication: FATIGUE
     Dosage: 80 MG AT BEDTIME PO
     Route: 048
     Dates: start: 20081104, end: 20090709
  2. SIMVASTATIN [Suspect]
     Indication: RHABDOMYOLYSIS
     Dosage: 80 MG AT BEDTIME PO
     Route: 048
     Dates: start: 20081104, end: 20090709
  3. GEMFIBROZIL [Suspect]
     Indication: FATIGUE
     Dosage: 1 TAB BID PO
     Route: 048
     Dates: start: 20050915, end: 20090709
  4. GEMFIBROZIL [Suspect]
     Indication: RHABDOMYOLYSIS
     Dosage: 1 TAB BID PO
     Route: 048
     Dates: start: 20050915, end: 20090709

REACTIONS (2)
  - ASTHENIA [None]
  - RHABDOMYOLYSIS [None]
